FAERS Safety Report 7222809-1 (Version None)
Quarter: 2011Q1

REPORT INFORMATION
  Report Type: 
  Country: None (occurrence: None)
  Receive Date: 20110106
  Receipt Date: 20110106
  Transmission Date: 20110831
  Serious: Yes (Other)
  Sender: FDA-Public Use
  Company Number: None

PATIENT
  Age: 1 Year
  Sex: Male
  Weight: 10.8863 kg

DRUGS (3)
  1. SINGULAIR [Suspect]
  2. SINGULAIR [Suspect]
     Indication: HYPERSENSITIVITY
     Dosage: 4MG 1 EVERY EVENING PO  (6 MONTHS; 1 MONTH, 1 WEEK)
     Route: 048
  3. SINGULAIR [Suspect]
     Indication: ASTHMA
     Dosage: 4MG 1 EVERY EVENING PO  (6 MONTHS; 1 MONTH, 1 WEEK)
     Route: 048

REACTIONS (1)
  - SLEEP TERROR [None]
